FAERS Safety Report 4984421-4 (Version None)
Quarter: 2006Q2

REPORT INFORMATION
  Report Type: 
  Country: None (occurrence: None)
  Receive Date: 20060427
  Receipt Date: 20060414
  Transmission Date: 20061013
  Serious: Yes (Other)
  Sender: FDA-Public Use
  Company Number: PHRM2006FR01408

PATIENT
  Age: 13 Year
  Sex: Male

DRUGS (2)
  1. ENALAPRIL MALEATE [Concomitant]
     Indication: RENAL FAILURE
     Route: 048
  2. TAREG [Suspect]
     Indication: HYPERTENSION
     Dosage: 20 MG, QD, THEN 40 MG
     Route: 048
     Dates: start: 20050101

REACTIONS (1)
  - GROWTH RETARDATION [None]
